FAERS Safety Report 9547725 (Version 1)
Quarter: 2013Q2

REPORT INFORMATION
  Report Type: Spontaneous
  Country: US (occurrence: None)
  Receive Date: 20130626
  Receipt Date: 20130626
  Transmission Date: 20140414
  Serious: Yes (Other)
  Sender: FDA-Public Use
  Company Number: 526807

PATIENT
  Age: 20 Year
  Sex: Male
  Weight: 67.3 kg

DRUGS (2)
  1. PRECEDEX [Suspect]
     Indication: PRODUCT USED FOR UNKNOWN INDICATION
     Dosage: 1 MCG/KG/HR
     Route: 042
  2. POTASSIUM CHL IN 5% DEX + 0.9% SOD. CHL INJ., USP., IN PVC FC (DEXTROSE AND POTASSIUM CHLORIDE AND SODIUM CHLORIDE) [Concomitant]

REACTIONS (2)
  - Extravasation [None]
  - Purulence [None]
